FAERS Safety Report 6040758-1 (Version None)
Quarter: 2009Q1

REPORT INFORMATION
  Report Type: 
  Country: None (occurrence: None)
  Receive Date: 20090116
  Receipt Date: 20080520
  Transmission Date: 20090719
  Serious: Yes (Other)
  Sender: FDA-Public Use
  Company Number: US-BRISTOL-MYERS SQUIBB COMPANY-14198014

PATIENT
  Age: 34 Year
  Sex: Female

DRUGS (6)
  1. ABILIFY [Suspect]
     Indication: BIPOLAR II DISORDER
     Dosage: STARTED WITH 1 MG QD
  2. LAMICTAL [Concomitant]
  3. DEPAKOTE [Concomitant]
  4. LEXAPRO [Concomitant]
  5. WELLBUTRIN XL [Concomitant]
  6. ATIVAN [Concomitant]

REACTIONS (3)
  - DEPRESSION [None]
  - INTENTIONAL SELF-INJURY [None]
  - SUICIDAL IDEATION [None]
